FAERS Safety Report 15296159 (Version 2)
Quarter: 2018Q3

REPORT INFORMATION
  Report Type: Report from Study
  Country: AR (occurrence: AR)
  Receive Date: 20180820
  Receipt Date: 20180919
  Transmission Date: 20181010
  Serious: Yes (Other)
  Sender: FDA-Public Use
  Company Number: CO-ACTELION-A-CH2018-177692

PATIENT
  Age: 45 Year
  Sex: Female
  Weight: 42 kg

DRUGS (1)
  1. OPSUMIT [Suspect]
     Active Substance: MACITENTAN
     Indication: PULMONARY ARTERIAL HYPERTENSION
     Dosage: 10 MG, QD
     Route: 048
     Dates: start: 201709

REACTIONS (1)
  - Red blood cell abnormality [Not Recovered/Not Resolved]

NARRATIVE: CASE EVENT DATE: 201709
